FAERS Safety Report 5307632-7 (Version None)
Quarter: 2007Q2

REPORT INFORMATION
  Report Type: 
  Country: None (occurrence: None)
  Receive Date: 20070425
  Receipt Date: 20070416
  Transmission Date: 20071010
  Serious: Yes (Other)
  Sender: FDA-Public Use
  Company Number: JP-PFIZER INC-2007024357

PATIENT
  Sex: Female

DRUGS (15)
  1. MINIPRESS [Suspect]
     Indication: HYPERTENSION
     Dosage: DAILY DOSE:.5MG
     Route: 048
  2. BLOPRESS [Concomitant]
     Indication: HYPERTENSION
     Route: 048
  3. AMLODIN [Concomitant]
     Indication: HYPERTENSION
     Route: 048
  4. THEOPHYLLINE [Concomitant]
     Route: 048
  5. DASEN [Concomitant]
     Route: 048
  6. DEZOLAM [Concomitant]
     Route: 048
  7. MONTELUKAST SODIUM [Concomitant]
     Route: 048
  8. MAGNESIUM OXIDE [Concomitant]
     Route: 048
  9. OMEPRAZOLE [Concomitant]
  10. ALENDRONATE SODIUM [Concomitant]
     Route: 048
  11. SENNOSIDES [Concomitant]
     Route: 048
  12. THYRADIN S [Concomitant]
     Route: 048
  13. CLARITHROMYCIN [Concomitant]
     Route: 048
  14. JUVELA NICOTINATE [Concomitant]
     Route: 048
  15. KETOPROFEN [Concomitant]
     Route: 062

REACTIONS (2)
  - SJOGREN'S SYNDROME [None]
  - THIRST [None]
